FAERS Safety Report 8126212-1 (Version None)
Quarter: 2012Q1

REPORT INFORMATION
  Report Type: 
  Country: None (occurrence: None)
  Receive Date: 20120209
  Receipt Date: 20120207
  Transmission Date: 20120608
  Serious: Yes (Death)
  Sender: FDA-Public Use
  Company Number: PHHY2012CA007580

PATIENT
  Sex: Female

DRUGS (1)
  1. CLOZARIL [Suspect]
     Indication: BIPOLAR DISORDER
     Dosage: 100 MG,
     Route: 048
     Dates: start: 20111201

REACTIONS (1)
  - COMPLETED SUICIDE [None]
